FAERS Safety Report 9856663 (Version 1)
Quarter: 2014Q1

REPORT INFORMATION
  Report Type: Spontaneous
  Country: BR (occurrence: BR)
  Receive Date: 20140130
  Receipt Date: 20140130
  Transmission Date: 20141002
  Serious: Yes (Other)
  Sender: FDA-Public Use
  Company Number: BR-GLAXOSMITHKLINE-A1042346A

PATIENT
  Sex: Female
  Weight: 57 kg

DRUGS (5)
  1. SERETIDE [Suspect]
     Indication: ASTHMA
     Route: 055
     Dates: start: 20130813
  2. BUDESONIDE [Suspect]
     Indication: PRODUCT USED FOR UNKNOWN INDICATION
     Route: 045
     Dates: start: 20130520
  3. NISTATIN [Suspect]
     Indication: GINGIVAL DISORDER
     Route: 065
  4. BAMIFYLLINE HYDROCHLORIDE [Suspect]
     Indication: PRODUCT USED FOR UNKNOWN INDICATION
     Dosage: 1TAB TWICE PER DAY
     Route: 048
     Dates: start: 20130813
  5. PRENATAL VITAMIN [Suspect]
     Indication: PRODUCT USED FOR UNKNOWN INDICATION
     Dosage: 1TAB PER DAY
     Route: 048
     Dates: start: 20130617

REACTIONS (7)
  - Asthmatic crisis [Not Recovered/Not Resolved]
  - Gingival disorder [Recovered/Resolved]
  - Gingival pain [Recovered/Resolved]
  - Lactation disorder [Not Recovered/Not Resolved]
  - Exposure during pregnancy [Unknown]
  - Live birth [Unknown]
  - Breast feeding [Unknown]
